FAERS Safety Report 6554888-9 (Version None)
Quarter: 2010Q1

REPORT INFORMATION
  Report Type: 
  Country: None (occurrence: None)
  Receive Date: 20100127
  Receipt Date: 20100120
  Transmission Date: 20100710
  Serious: Yes (Death)
  Sender: FDA-Public Use
  Company Number: FR-ABBOTT-10P-056-0620581-00

PATIENT
  Age: 34 Year
  Sex: Male

DRUGS (6)
  1. DEPAKOTE [Suspect]
     Indication: MANIA
     Route: 048
  2. STILNOX [Suspect]
     Indication: ANXIETY
     Route: 048
  3. CLOZAPINE [Suspect]
     Indication: SCHIZOPHRENIA, PARANOID TYPE
     Route: 048
     Dates: start: 20090428
  4. FLUANXOL [Suspect]
     Indication: SCHIZOPHRENIA, PARANOID TYPE
     Dosage: DAILY
     Route: 048
  5. LEVOTHYROXINE SODIUM [Suspect]
     Indication: THYROID DISORDER
     Dosage: DAILY
     Route: 048
  6. VALIUM [Suspect]
     Indication: ANXIETY
     Dosage: DAILY
     Route: 048

REACTIONS (1)
  - SUDDEN DEATH [None]
